FAERS Safety Report 4658777-6 (Version None)
Quarter: 2005Q2

REPORT INFORMATION
  Report Type: 
  Country: None (occurrence: None)
  Receive Date: 20050509
  Receipt Date: 20050426
  Transmission Date: 20051028
  Serious: Yes (Hospitalization)
  Sender: FDA-Public Use
  Company Number: 2004193459JP

PATIENT
  Age: 39 Year
  Sex: Male
  Weight: 101 kg

DRUGS (8)
  1. GENOTROPIN [Suspect]
     Indication: HYPOPITUITARISM
     Dosage: SEE IMAGE
     Route: 058
     Dates: start: 20030730, end: 20040113
  2. GENOTROPIN [Suspect]
     Indication: HYPOPITUITARISM
     Dosage: SEE IMAGE
     Route: 058
     Dates: start: 20040120, end: 20040304
  3. GENOTROPIN [Suspect]
     Indication: HYPOPITUITARISM
     Dosage: SEE IMAGE
     Route: 058
     Dates: start: 20040305
  4. PREDNISONE [Concomitant]
  5. ADENOSINE TRIPHOSPHATE, DISODIUM SALT [Concomitant]
  6. MECOBALAMIN          (MECOBALAMIN) [Concomitant]
  7. REBAMIPIDE (REBAMIPIDE) [Concomitant]
  8. FAMOTIDINE [Concomitant]

REACTIONS (4)
  - BACK PAIN [None]
  - DEAFNESS UNILATERAL [None]
  - LUMBAR HERNIA [None]
  - SUDDEN HEARING LOSS [None]
